FAERS Safety Report 18333682 (Version 2)
Quarter: 2020Q4

REPORT INFORMATION
  Report Type: Spontaneous
  Country: US (occurrence: US)
  Receive Date: 20201001
  Receipt Date: 20201016
  Transmission Date: 20210113
  Serious: Yes (Hospitalization, Other)
  Sender: FDA-Public Use
  Company Number: US-ASTRAZENECA-2020SF25269

PATIENT
  Age: 20296 Day
  Sex: Female
  Weight: 105.2 kg

DRUGS (51)
  1. VANCOMYCIN [Concomitant]
     Active Substance: VANCOMYCIN
  2. ESCITALOPRAM OXALATE. [Concomitant]
     Active Substance: ESCITALOPRAM OXALATE
  3. BYDUREON [Concomitant]
     Active Substance: EXENATIDE
  4. CYCLOBENZAPRINE. [Concomitant]
     Active Substance: CYCLOBENZAPRINE
  5. METOPROLOL TARTRATE. [Concomitant]
     Active Substance: METOPROLOL TARTRATE
  6. OLODATEROL HYDROCHLORIDE [Concomitant]
     Active Substance: OLODATEROL HYDROCHLORIDE
  7. PENICILLIN [Concomitant]
     Active Substance: PENICILLIN
  8. GLUCOSE [Concomitant]
     Active Substance: DEXTROSE
  9. MAGNESIUM [Concomitant]
     Active Substance: MAGNESIUM
  10. GLUCAGON. [Concomitant]
     Active Substance: GLUCAGON
  11. SULBACTAM [Concomitant]
     Active Substance: SULBACTAM
  12. ATORVASTATIN CALCIUM. [Concomitant]
     Active Substance: ATORVASTATIN CALCIUM
  13. VALACYCLOVIR [Concomitant]
     Active Substance: VALACYCLOVIR HYDROCHLORIDE
  14. NORCO [Concomitant]
     Active Substance: ACETAMINOPHEN\HYDROCODONE BITARTRATE
  15. LISINOPRIL. [Concomitant]
     Active Substance: LISINOPRIL
  16. FARXIGA [Suspect]
     Active Substance: DAPAGLIFLOZIN PROPANEDIOL
     Indication: WEIGHT DECREASED
     Route: 048
     Dates: start: 20160716, end: 201704
  17. FARXIGA [Suspect]
     Active Substance: DAPAGLIFLOZIN PROPANEDIOL
     Indication: HYPOTENSION
     Route: 048
     Dates: start: 20160716, end: 201704
  18. CLOTRIMAZOLE. [Concomitant]
     Active Substance: CLOTRIMAZOLE
  19. AMOX/K CLAV [Concomitant]
     Active Substance: AMOXICILLIN\CLAVULANATE POTASSIUM
  20. CEFDINIR. [Concomitant]
     Active Substance: CEFDINIR
  21. METFORMIN [Concomitant]
     Active Substance: METFORMIN HYDROCHLORIDE
  22. HYDROCHLOROTHIAZIDE. [Concomitant]
     Active Substance: HYDROCHLOROTHIAZIDE
  23. ERTAPENEM. [Concomitant]
     Active Substance: ERTAPENEM SODIUM
  24. LOVENOX [Concomitant]
     Active Substance: ENOXAPARIN SODIUM
  25. CEFTRIAXONE. [Concomitant]
     Active Substance: CEFTRIAXONE
  26. LEVEMIR [Concomitant]
     Active Substance: INSULIN DETEMIR
  27. BASAGLAR KWIKPEN [Concomitant]
     Active Substance: INSULIN GLARGINE
  28. HUMALOG [Concomitant]
     Active Substance: INSULIN LISPRO
  29. TRAMADOL. [Concomitant]
     Active Substance: TRAMADOL
  30. MAGNESIUM SULPHATE [Concomitant]
     Active Substance: MAGNESIUM SULFATE
  31. SENNA [Concomitant]
     Active Substance: SENNA LEAF\SENNOSIDES\SENNOSIDES A AND B
  32. LEVOTHYROXINE. [Concomitant]
     Active Substance: LEVOTHYROXINE
  33. AMLODIPINE BESYLATE. [Concomitant]
     Active Substance: AMLODIPINE BESYLATE
  34. AZTREONAM. [Concomitant]
     Active Substance: AZTREONAM
  35. CEFEPIME [Concomitant]
     Active Substance: CEFEPIME HYDROCHLORIDE
  36. CIPROFLOXACIN. [Concomitant]
     Active Substance: CIPROFLOXACIN
  37. FARXIGA [Suspect]
     Active Substance: DAPAGLIFLOZIN PROPANEDIOL
     Indication: TYPE 2 DIABETES MELLITUS
     Route: 048
     Dates: start: 20160716, end: 201704
  38. LANTUS [Concomitant]
     Active Substance: INSULIN GLARGINE
  39. DOXYCYCLINE HYCLATE. [Concomitant]
     Active Substance: DOXYCYCLINE HYCLATE
  40. FENTANYL. [Concomitant]
     Active Substance: FENTANYL
  41. LOSARTAN POTASSIUM. [Concomitant]
     Active Substance: LOSARTAN POTASSIUM
  42. SULFA [Concomitant]
     Active Substance: UNSPECIFIED INGREDIENT
  43. METOCLOPRAMIDE. [Concomitant]
     Active Substance: METOCLOPRAMIDE
  44. SULFAMETHOXAZOLE [Concomitant]
     Active Substance: SULFAMETHOXAZOLE
  45. AMIKACIN. [Concomitant]
     Active Substance: AMIKACIN
  46. CRYSTALLOID [Concomitant]
     Active Substance: UNSPECIFIED INGREDIENT
  47. BUPROPION HYDROCHLORIDE. [Concomitant]
     Active Substance: BUPROPION HYDROCHLORIDE
  48. DIAZEPAM. [Concomitant]
     Active Substance: DIAZEPAM
  49. OXYCODONE [Concomitant]
     Active Substance: OXYCODONE
  50. FLUTICASONE. [Concomitant]
     Active Substance: FLUTICASONE
  51. LYRICA [Concomitant]
     Active Substance: PREGABALIN

REACTIONS (8)
  - Abscess limb [Unknown]
  - Nerve injury [Unknown]
  - Staphylococcal infection [Unknown]
  - Scar [Unknown]
  - Fournier^s gangrene [Unknown]
  - Groin abscess [Unknown]
  - Cellulitis gangrenous [Unknown]
  - Pain [Unknown]

NARRATIVE: CASE EVENT DATE: 20170409
